FAERS Safety Report 10474906 (Version 1)
Quarter: 2014Q3

REPORT INFORMATION
  Report Type: Spontaneous
  Country: US (occurrence: US)
  Receive Date: 20140925
  Receipt Date: 20140925
  Transmission Date: 20150326
  Serious: No
  Sender: FDA-Public Use
  Company Number: US-BIOGENIDEC-2014BI097350

PATIENT
  Sex: Female

DRUGS (2)
  1. AVONEX [Suspect]
     Active Substance: INTERFERON BETA-1A
     Indication: MULTIPLE SCLEROSIS
     Route: 030
  2. TYSABRI [Concomitant]
     Active Substance: NATALIZUMAB
     Indication: MULTIPLE SCLEROSIS
     Route: 042
     Dates: start: 20140620

REACTIONS (14)
  - Peripheral coldness [Unknown]
  - Skin discolouration [Unknown]
  - Depression [Unknown]
  - Peripheral swelling [Unknown]
  - Temperature intolerance [Unknown]
  - Hypotonia [Not Recovered/Not Resolved]
  - Poor peripheral circulation [Unknown]
  - Central nervous system lesion [Unknown]
  - Anger [Unknown]
  - General symptom [Recovered/Resolved]
  - Fall [Recovered/Resolved]
  - Memory impairment [Unknown]
  - Fatigue [Unknown]
  - Blood pressure decreased [Unknown]
